FAERS Safety Report 9496067 (Version 2)
Quarter: 2013Q3

REPORT INFORMATION
  Report Type: Spontaneous
  Country: US (occurrence: US)
  Receive Date: 20130904
  Receipt Date: 20130919
  Transmission Date: 20140515
  Serious: No
  Sender: FDA-Public Use
  Company Number: US-BIOGENIDEC-2013BI081124

PATIENT
  Age: 32 Year
  Sex: Female

DRUGS (2)
  1. TYSABRI [Suspect]
     Indication: MULTIPLE SCLEROSIS
     Route: 042
     Dates: start: 20100218, end: 20130214
  2. TECFIDERA [Concomitant]
     Indication: MULTIPLE SCLEROSIS
     Route: 048
     Dates: start: 20130507

REACTIONS (1)
  - Multiple sclerosis relapse [Unknown]
